FAERS Safety Report 23758953 (Version 1)
Quarter: 2024Q2

REPORT INFORMATION
  Report Type: Other
  Country: US (occurrence: None)
  Receive Date: 20240418
  Receipt Date: 20240418
  Transmission Date: 20240716
  Serious: No
  Sender: FDA-Public Use
  Company Number: US-ROCHE-3315800

PATIENT
  Age: 19 Year
  Sex: Female

DRUGS (4)
  1. BEVACIZUMAB [Suspect]
     Active Substance: BEVACIZUMAB
     Indication: Cystoid macular oedema
     Dosage: TOTAL 3 INJECTIONS WERE GIVEN TO PATIENT
     Route: 050
  2. BEVACIZUMAB [Suspect]
     Active Substance: BEVACIZUMAB
     Indication: Retinal vein occlusion
  3. BEVACIZUMAB BVZR [Concomitant]
     Indication: Choroidal neovascularisation
     Dosage: VOLUME-0.05 ML, DOSAGE-1.25 MG, 1 OD (OD=RIGHT EYE)
     Route: 050
  4. AFLIBERCEPT [Concomitant]
     Active Substance: AFLIBERCEPT

REACTIONS (3)
  - Off label use [Unknown]
  - Off label use [Unknown]
  - No adverse event [Unknown]
